FAERS Safety Report 6667322-5 (Version None)
Quarter: 2010Q2

REPORT INFORMATION
  Report Type: 
  Country: None (occurrence: None)
  Receive Date: 20100401
  Receipt Date: 20100401
  Transmission Date: 20101027
  Serious: No
  Sender: FDA-Public Use
  Company Number: None

PATIENT
  Age: 53 Year
  Sex: Female

DRUGS (1)
  1. CYMBALTA [Suspect]
     Dosage: ONCE A DAY
     Route: 048
     Dates: start: 20091021, end: 20091026

REACTIONS (13)
  - ABDOMINAL PAIN [None]
  - ANXIETY [None]
  - BONE PAIN [None]
  - HEADACHE [None]
  - HYPOSMIA [None]
  - INTERVERTEBRAL DISC CALCIFICATION [None]
  - INTERVERTEBRAL DISC DISORDER [None]
  - JOINT STIFFNESS [None]
  - MOVEMENT DISORDER [None]
  - MYALGIA [None]
  - SPINAL CORD INJURY [None]
  - SPINAL DECOMPRESSION [None]
  - SWOLLEN TONGUE [None]
